FAERS Safety Report 15663672 (Version 3)
Quarter: 2019Q2

REPORT INFORMATION
  Report Type: Report from Study
  Country: US (occurrence: US)
  Receive Date: 20181128
  Receipt Date: 20190417
  Transmission Date: 20190711
  Serious: Yes (Other)
  Sender: FDA-Public Use
  Company Number: US-EMD SERONO-9054436

PATIENT
  Sex: Female

DRUGS (1)
  1. REBIF [Suspect]
     Active Substance: INTERFERON BETA-1A
     Indication: MULTIPLE SCLEROSIS
     Route: 058
     Dates: start: 20060824

REACTIONS (11)
  - Back pain [Not Recovered/Not Resolved]
  - Weight increased [Unknown]
  - Nerve compression [Unknown]
  - Joint stiffness [Unknown]
  - Breast cellulitis [Unknown]
  - Pruritus generalised [Unknown]
  - Arthralgia [Unknown]
  - Joint range of motion decreased [Unknown]
  - Muscular weakness [Unknown]
  - Ligament disorder [Unknown]
  - Facet joint syndrome [Unknown]
